FAERS Safety Report 6617945-4 (Version None)
Quarter: 2010Q1

REPORT INFORMATION
  Report Type: 
  Country: None (occurrence: None)
  Receive Date: 20100308
  Receipt Date: 20100217
  Transmission Date: 20100710
  Serious: Yes (Hospitalization)
  Sender: FDA-Public Use
  Company Number: PHHY2010FR09124

PATIENT
  Age: 10 Year
  Sex: Male

DRUGS (9)
  1. OXCARBAZEPINE [Suspect]
     Indication: EPILEPSY
     Dosage: 540 MG AM/510 MG NOCTE
  2. OXCARBAZEPINE [Interacting]
     Dosage: 420 MG, UNK
  3. OXCARBAZEPINE [Interacting]
     Dosage: 540 MG, UNK
  4. OXCARBAZEPINE [Interacting]
     Dosage: 270 MG, UNK
  5. OXCARBAZEPINE [Interacting]
     Dosage: 540 MG, UNK
  6. CLARITHROMYCIN [Interacting]
     Indication: RESPIRATORY TRACT INFECTION
     Dosage: 250 MG, BID
  7. LAMOTRIGINE [Concomitant]
     Dosage: 100 MG, BID
  8. VALPROATE SODIUM [Concomitant]
     Dosage: 100 MG AM/300 MG
  9. TOPIRAMATE [Concomitant]
     Dosage: 100 MG, BID

REACTIONS (14)
  - ATAXIA [None]
  - BLOOD CALCIUM DECREASED [None]
  - DIZZINESS [None]
  - DRUG INTERACTION [None]
  - DRUG LEVEL INCREASED [None]
  - ELECTROENCEPHALOGRAM ABNORMAL [None]
  - EPILEPSY [None]
  - GAIT DISTURBANCE [None]
  - HYPERKINESIA [None]
  - NYSTAGMUS [None]
  - SOMNOLENCE [None]
  - THERAPEUTIC AGENT TOXICITY [None]
  - UNRESPONSIVE TO STIMULI [None]
  - VOMITING [None]
